FAERS Safety Report 10594980 (Version 1)
Quarter: 2014Q4

REPORT INFORMATION
  Report Type: Spontaneous
  Country: US (occurrence: US)
  Receive Date: 20141120
  Receipt Date: 20141120
  Transmission Date: 20150529
  Serious: No
  Sender: FDA-Public Use
  Company Number: US-BIOGENIDEC-2014BI121503

PATIENT

DRUGS (1)
  1. AVONEX [Suspect]
     Active Substance: INTERFERON BETA-1A
     Indication: PRODUCT USED FOR UNKNOWN INDICATION
     Route: 030
     Dates: start: 19960701, end: 19970701

REACTIONS (6)
  - Multiple sclerosis [Unknown]
  - Memory impairment [Unknown]
  - Suicidal ideation [Unknown]
  - Procedural anxiety [Unknown]
  - Nervous system disorder [Unknown]
  - Injection site induration [Unknown]
